FAERS Safety Report 5489923-2 (Version None)
Quarter: 2007Q4

REPORT INFORMATION
  Report Type: 
  Country: None (occurrence: None)
  Receive Date: 20071018
  Receipt Date: 20071003
  Transmission Date: 20080405
  Serious: Yes (Hospitalization)
  Sender: FDA-Public Use
  Company Number: JP-GENENTECH-249474

PATIENT
  Sex: Female

DRUGS (2)
  1. HERCEPTIN [Suspect]
     Indication: BREAST CANCER
     Dosage: 120 MG, 1/WEEK
     Route: 042
     Dates: start: 20041015, end: 20070915
  2. XELODA [Suspect]
     Indication: BREAST CANCER
     Dosage: 1200 MG, BID
     Route: 048
     Dates: start: 20060915, end: 20070915

REACTIONS (1)
  - INTERSTITIAL LUNG DISEASE [None]
